FAERS Safety Report 21462099 (Version 1)
Quarter: 2022Q4

REPORT INFORMATION
  Report Type: Spontaneous
  Country: JP (occurrence: JP)
  Receive Date: 20221015
  Receipt Date: 20221015
  Transmission Date: 20230112
  Serious: Yes (Hospitalization, Disabling, Other)
  Sender: FDA-Public Use
  Company Number: JP-CHUGAI-2022020991

PATIENT
  Sex: Female
  Weight: 49 kg

DRUGS (12)
  1. ACTEMRA [Suspect]
     Active Substance: TOCILIZUMAB
     Indication: Rheumatoid arthritis
     Dosage: ONCE/2WEEKS
     Route: 041
     Dates: start: 20200602, end: 20220522
  2. PREDONINE [Suspect]
     Active Substance: PREDNISOLONE
     Indication: Product used for unknown indication
     Dosage: 10 MILLIGRAM, QD
     Route: 048
  3. PROGRAF [Suspect]
     Active Substance: TACROLIMUS
     Indication: Product used for unknown indication
     Route: 065
  4. IGURATIMOD [Concomitant]
     Active Substance: IGURATIMOD
     Dosage: 25 MILLIGRAM, BID
     Route: 048
  5. LOXOPROFEN SODIUM [Concomitant]
     Active Substance: LOXOPROFEN SODIUM
     Dosage: 100 MILLIGRAM, QD
     Route: 061
  6. VONOPRAZAN FUMARATE [Concomitant]
     Active Substance: VONOPRAZAN FUMARATE
     Dosage: 10 MILLIGRAM, QD
     Route: 048
  7. ALENDRONATE SODIUM [Concomitant]
     Active Substance: ALENDRONATE SODIUM
     Dosage: 35 MILLIGRAM, ONCE/WEEK
     Route: 048
  8. CALONAL [Concomitant]
     Active Substance: ACETAMINOPHEN
     Dosage: 500 MILLIGRAM, TID
     Route: 048
  9. FUROSEMIDE [Concomitant]
     Active Substance: FUROSEMIDE
     Dosage: 10 MILLIGRAM, QD
     Route: 048
  10. XARELTO [Concomitant]
     Active Substance: RIVAROXABAN
     Dosage: 15 MILLIGRAM, QD
     Route: 048
  11. BIO-THREE [Concomitant]
     Active Substance: HERBALS
     Dosage: 1 TABLET, TID
     Route: 048
  12. POTASSIUM GLUCONATE [Concomitant]
     Active Substance: POTASSIUM GLUCONATE
     Dosage: 1 GRAM, TID
     Route: 048

REACTIONS (3)
  - Pneumatosis intestinalis [Recovering/Resolving]
  - Gastric cancer [Unknown]
  - Large intestine perforation [Recovering/Resolving]

NARRATIVE: CASE EVENT DATE: 20220514
